FAERS Safety Report 17729226 (Version 1)
Quarter: 2020Q2

REPORT INFORMATION
  Report Type: Spontaneous
  Country: IN (occurrence: IN)
  Receive Date: 20200430
  Receipt Date: 20200430
  Transmission Date: 20200714
  Serious: Yes (Hospitalization)
  Sender: FDA-Public Use
  Company Number: NVSC2020IN115852

PATIENT
  Age: 29 Year
  Sex: Male

DRUGS (4)
  1. MYCOPHENOLATE MOFETIL. [Concomitant]
     Active Substance: MYCOPHENOLATE MOFETIL
     Indication: LUPUS NEPHRITIS
     Dosage: 1.5 G, BID
     Route: 065
  2. PREDNISOLONE. [Concomitant]
     Active Substance: PREDNISOLONE
     Indication: LUPUS NEPHRITIS
     Dosage: 30 MG, QD
     Route: 065
  3. PREDNISOLONE. [Concomitant]
     Active Substance: PREDNISOLONE
     Dosage: 60 MG, QD
     Route: 065
  4. HYDROXYCHLOROQUINE [Suspect]
     Active Substance: HYDROXYCHLOROQUINE
     Indication: LUPUS NEPHRITIS
     Dosage: 100 MG, BID
     Route: 065

REACTIONS (7)
  - Dysphagia [Recovered/Resolved]
  - Skin exfoliation [Recovered/Resolved]
  - Mouth ulceration [Recovered/Resolved]
  - Dermatitis bullous [Recovered/Resolved]
  - Toxic epidermal necrolysis [Recovered/Resolved]
  - Product use in unapproved indication [Unknown]
  - Ocular hyperaemia [Recovered/Resolved]
